FAERS Safety Report 5585244-8 (Version None)
Quarter: 2008Q1

REPORT INFORMATION
  Report Type: 
  Country: None (occurrence: None)
  Receive Date: 20080109
  Receipt Date: 20071218
  Transmission Date: 20080703
  Serious: Yes (Hospitalization)
  Sender: FDA-Public Use
  Company Number: PHEH2007US16288

PATIENT
  Age: 73 Year
  Sex: Female
  Weight: 58.503 kg

DRUGS (5)
  1. RECLAST [Suspect]
     Indication: OSTEOPOROSIS
     Dosage: 5 MG IV YEARLY
     Dates: start: 20071207
  2. VYTORIN [Concomitant]
     Dosage: 10/40 MG QD
     Route: 048
  3. PRILOSEC [Concomitant]
     Route: 048
  4. ASPIRIN [Concomitant]
     Dosage: 81 MG, QD
     Route: 048
  5. CALCIUM GLUCONATE [Concomitant]
     Dosage: 2 TABS DAILY
     Route: 048

REACTIONS (5)
  - BLOOD CALCIUM DECREASED [None]
  - CHILLS [None]
  - MYALGIA [None]
  - PYREXIA [None]
  - SYNCOPE [None]
